FAERS Safety Report 6075775-9 (Version None)
Quarter: 2009Q1

REPORT INFORMATION
  Report Type: 
  Country: None (occurrence: None)
  Receive Date: 20090212
  Receipt Date: 20090202
  Transmission Date: 20090719
  Serious: Yes (Death, Hospitalization)
  Sender: FDA-Public Use
  Company Number: PHHY2009JP03714

PATIENT
  Sex: Male

DRUGS (6)
  1. DIOVAN [Suspect]
     Indication: HYPERTENSION
     Dosage: 40 MG, QD
     Route: 048
     Dates: start: 20070801, end: 20070925
  2. MEXILETINE HYDROCHLORIDE [Concomitant]
     Dosage: 450 MG, UNK
     Route: 048
     Dates: start: 20001010, end: 20070925
  3. TOFRANIL [Concomitant]
     Dosage: 75 MG, UNK
     Route: 048
     Dates: start: 20010402, end: 20070925
  4. RIVOTRIL [Concomitant]
     Dosage: 5 MG, UNK
     Route: 048
     Dates: start: 20010929, end: 20070925
  5. MAGMITT KENEI [Concomitant]
     Dosage: 750 MG, UNK
     Route: 048
     Dates: start: 20070828, end: 20070925
  6. METLIGINE [Concomitant]
     Dosage: 4 MG, UNK
     Route: 048
     Dates: start: 20070405, end: 20070925

REACTIONS (2)
  - DEATH [None]
  - PNEUMONIA [None]
